FAERS Safety Report 18770629 (Version 4)
Quarter: 2022Q4

REPORT INFORMATION
  Report Type: Report from Study
  Country: US (occurrence: US)
  Receive Date: 20210122
  Receipt Date: 20221020
  Transmission Date: 20230113
  Serious: Yes (Death, Other)
  Sender: FDA-Public Use
  Company Number: US-ACADIA PHARMACEUTICALS INC.-ACA-2020-PIM-004201

PATIENT
  Sex: Male

DRUGS (9)
  1. NUPLAZID [Suspect]
     Active Substance: PIMAVANSERIN TARTRATE
     Indication: Parkinson^s disease
     Dosage: 34 MILLIGRAM, QD
     Route: 048
     Dates: start: 20190904
  2. NUPLAZID [Suspect]
     Active Substance: PIMAVANSERIN TARTRATE
     Dosage: UNK
     Route: 065
  3. AMLODIPINE [Concomitant]
     Active Substance: AMLODIPINE BESYLATE
  4. CARBIDOPA\LEVODOPA [Concomitant]
     Active Substance: CARBIDOPA\LEVODOPA
  5. CLONAZEPAM [Concomitant]
     Active Substance: CLONAZEPAM
  6. LACTULOSE [Concomitant]
     Active Substance: LACTULOSE
  7. OMEPRAZOLE [Concomitant]
     Active Substance: OMEPRAZOLE
  8. LINZESS [Concomitant]
     Active Substance: LINACLOTIDE
  9. ONDANSETRON [Concomitant]
     Active Substance: ONDANSETRON

REACTIONS (5)
  - Death [Fatal]
  - Delusion [Unknown]
  - Delusion [Unknown]
  - Constipation [Not Recovered/Not Resolved]
  - Therapeutic product effect decreased [Unknown]
